FAERS Safety Report 8924114 (Version 2)
Quarter: 2012Q4

REPORT INFORMATION
  Report Type: 
  Country: US (occurrence: US)
  Receive Date: 20121126
  Receipt Date: 20121128
  Transmission Date: 20130627
  Serious: Yes (Death)
  Sender: FDA-Public Use
  Company Number: US-GILEAD-2012-0065077

PATIENT
  Sex: Female

DRUGS (5)
  1. LETAIRIS [Suspect]
     Indication: COR PULMONALE CHRONIC
     Dosage: 10 mg, QD
     Route: 048
     Dates: start: 20080430, end: 201211
  2. LETAIRIS [Suspect]
     Indication: UNEVALUABLE EVENT
  3. LETAIRIS [Suspect]
     Indication: SCLERODERMA
  4. LETAIRIS [Suspect]
     Indication: PULMONARY HYPERTENSION
  5. VENTAVIS [Concomitant]

REACTIONS (1)
  - Respiratory failure [Fatal]
